FAERS Safety Report 12696629 (Version 2)
Quarter: 2016Q3

REPORT INFORMATION
  Report Type: Report from Study
  Country: FR (occurrence: FR)
  Receive Date: 20160830
  Receipt Date: 20160929
  Transmission Date: 20161109
  Serious: Yes (Hospitalization)
  Sender: FDA-Public Use
  Company Number: FR-ROCHE-1819360

PATIENT
  Age: 51 Year

DRUGS (11)
  1. LOVENOX [Concomitant]
     Active Substance: ENOXAPARIN SODIUM
     Dosage: 0.4ML PER DAY
     Route: 058
     Dates: start: 20160823, end: 20160907
  2. ATARAX [Concomitant]
     Active Substance: HYDROXYZINE\HYDROXYZINE HYDROCHLORIDE
     Dosage: 2 MG/ML
     Route: 048
     Dates: start: 20160827, end: 20160829
  3. NAROPEINE [Concomitant]
     Active Substance: ROPIVACAINE HYDROCHLORIDE
     Dosage: EPIDERMAL
     Route: 065
     Dates: start: 20160822, end: 20160825
  4. ABUFENE [Concomitant]
     Route: 048
     Dates: start: 20160821, end: 20160901
  5. CEFAZOLINE [Concomitant]
     Active Substance: CEFAZOLIN SODIUM
     Route: 042
     Dates: start: 20160822, end: 20160822
  6. TRASTUZUMAB [Suspect]
     Active Substance: TRASTUZUMAB
     Indication: HER-2 POSITIVE BREAST CANCER
     Dosage: DATE OF LAST ADMINISTRATION BEFORE SAE: 04/AUG/2016
     Route: 042
     Dates: start: 20150224
  7. PERTUZUMAB [Suspect]
     Active Substance: PERTUZUMAB
     Indication: HER-2 POSITIVE BREAST CANCER
     Dosage: DATE OF LAST ADMINISTRATION BEFORE SAE: 04/AUG/2016
     Route: 042
     Dates: start: 20150224
  8. TRASTUZUMAB [Suspect]
     Active Substance: TRASTUZUMAB
     Dosage: RESTARTED
     Route: 042
     Dates: start: 20160907
  9. PERTUZUMAB [Suspect]
     Active Substance: PERTUZUMAB
     Dosage: RESTARTED
     Route: 042
     Dates: start: 20160907
  10. PARACETAMOL [Concomitant]
     Active Substance: ACETAMINOPHEN
     Route: 048
     Dates: start: 20160822
  11. TOPALGIC (FRANCE) [Concomitant]
     Active Substance: TRAMADOL
     Route: 048
     Dates: start: 20160825, end: 20160826

REACTIONS (1)
  - Incisional hernia [Recovered/Resolved with Sequelae]

NARRATIVE: CASE EVENT DATE: 20160821
